FAERS Safety Report 5919403-9 (Version None)
Quarter: 2008Q4

REPORT INFORMATION
  Report Type: 
  Country: None (occurrence: None)
  Receive Date: 20081015
  Receipt Date: 20081009
  Transmission Date: 20090506
  Serious: Yes (Hospitalization)
  Sender: FDA-Public Use
  Company Number: D0058970A

PATIENT
  Age: 28 Year
  Sex: Male

DRUGS (4)
  1. AUGMENTIN '125' [Suspect]
     Dosage: 2.2G THREE TIMES PER DAY
     Route: 042
     Dates: start: 20081001
  2. PANTOPRAZOL [Concomitant]
     Route: 065
  3. PREDNISOLON [Concomitant]
     Route: 065
  4. REMICADE [Concomitant]
     Route: 042

REACTIONS (5)
  - BLOOD ALKALINE PHOSPHATASE INCREASED [None]
  - BLOOD BILIRUBIN INCREASED [None]
  - GAMMA-GLUTAMYLTRANSFERASE INCREASED [None]
  - HEPATIC ENZYME INCREASED [None]
  - HEPATOTOXICITY [None]
